FAERS Safety Report 19048540 (Version 1)
Quarter: 2021Q1

REPORT INFORMATION
  Report Type: Spontaneous
  Country: US (occurrence: US)
  Receive Date: 20210323
  Receipt Date: 20210323
  Transmission Date: 20210420
  Serious: No
  Sender: FDA-Public Use
  Company Number: US-MYLANLABS-2021M1012355

PATIENT
  Sex: Female
  Weight: 68 kg

DRUGS (1)
  1. ESTRADIOL TRANSDERMAL SYSTEM [Suspect]
     Active Substance: ESTRADIOL
     Indication: ARTIFICIAL MENOPAUSE
     Dosage: UNK
     Route: 062

REACTIONS (4)
  - Rash [Recovered/Resolved]
  - Skin irritation [Recovered/Resolved]
  - Product adhesion issue [Recovered/Resolved]
  - Drug ineffective [Unknown]
